FAERS Safety Report 16060616 (Version 1)
Quarter: 2019Q1

REPORT INFORMATION
  Report Type: Spontaneous
  Country: US (occurrence: US)
  Receive Date: 20190211
  Receipt Date: 20190211
  Transmission Date: 20190418
  Serious: No
  Sender: FDA-Public Use
  Company Number: None

PATIENT
  Age: 15 Day
  Sex: Female
  Weight: 44.45 kg

DRUGS (1)
  1. ENBREL [Suspect]
     Active Substance: ETANERCEPT
     Indication: PSORIASIS
     Dosage: DEC2019 GREATER THAN CURRENT DATE - OMITTED
     Route: 058

REACTIONS (3)
  - Muscle spasms [None]
  - Gastroenteritis viral [None]
  - Diarrhoea [None]
